FAERS Safety Report 24749092 (Version 1)
Quarter: 2024Q4

REPORT INFORMATION
  Report Type: Spontaneous
  Country: US (occurrence: US)
  Receive Date: 20241218
  Receipt Date: 20241218
  Transmission Date: 20250115
  Serious: No
  Sender: PFIZER
  Company Number: US-PFIZER INC-202400325358

PATIENT
  Age: 61 Year
  Sex: Female

DRUGS (1)
  1. IBRANCE [Suspect]
     Active Substance: PALBOCICLIB
     Dosage: 125 MG, CYCLIC (TAKE 1 TABLET DAILY ON DAYS 1 THROUGH 21 ON A 28 DAY CYCLE (7 DAY BREAK)
     Dates: start: 20241002

REACTIONS (2)
  - Memory impairment [Unknown]
  - Movement disorder [Unknown]

NARRATIVE: CASE EVENT DATE: 20240101
